FAERS Safety Report 6184376-3 (Version None)
Quarter: 2009Q2

REPORT INFORMATION
  Report Type: 
  Country: None (occurrence: None)
  Receive Date: 20090508
  Receipt Date: 20090501
  Transmission Date: 20091009
  Serious: Yes (Death, Hospitalization)
  Sender: FDA-Public Use
  Company Number: A0782841A

PATIENT
  Age: 78 Year
  Sex: Female
  Weight: 79.5 kg

DRUGS (12)
  1. AVANDIA [Suspect]
     Indication: DIABETES MELLITUS
     Dosage: 2MG PER DAY
     Route: 048
     Dates: start: 20000710, end: 20070212
  2. ATENOLOL [Concomitant]
  3. TOPROL-XL [Concomitant]
  4. COREG [Concomitant]
  5. HYDROCHLOROTHIAZIDE [Concomitant]
  6. CELEBREX [Concomitant]
  7. LIPITOR [Concomitant]
  8. SEROQUEL [Concomitant]
  9. PROZAC [Concomitant]
  10. ZOLOFT [Concomitant]
  11. WELLBUTRIN [Concomitant]
  12. CELEBREX [Concomitant]

REACTIONS (1)
  - MYOCARDIAL INFARCTION [None]
